FAERS Safety Report 4507357-1 (Version None)
Quarter: 2004Q4

REPORT INFORMATION
  Report Type: 
  Country: None (occurrence: None)
  Receive Date: 20041122
  Receipt Date: 20041109
  Transmission Date: 20050328
  Serious: Yes (Death)
  Sender: FDA-Public Use
  Company Number: 163-20785-04100044

PATIENT
  Age: 70 Year
  Sex: Female

DRUGS (1)
  1. THALOMID [Suspect]
     Indication: MYELODYSPLASTIC SYNDROME
     Dosage: 150 MG, DAILY, ORAL
     Route: 048
     Dates: start: 20040315, end: 20040601

REACTIONS (2)
  - ACUTE MYELOID LEUKAEMIA [None]
  - SEPSIS [None]
